FAERS Safety Report 9287070 (Version 1)
Quarter: 2013Q2

REPORT INFORMATION
  Report Type: Spontaneous
  Country: US (occurrence: US)
  Receive Date: 20130513
  Receipt Date: 20130513
  Transmission Date: 20140414
  Serious: Yes (Other)
  Sender: FDA-Public Use
  Company Number: US-TEVA-404053USA

PATIENT
  Age: 48 Year
  Sex: Female
  Weight: 104.42 kg

DRUGS (5)
  1. VENLAFAXINE [Suspect]
     Indication: DEPRESSION
  2. ALPRAZOLAM XR [Suspect]
     Indication: DEPRESSION
     Dosage: 4 MILLIGRAM DAILY;
  3. ALPRAZOLAM [Suspect]
     Indication: DEPRESSION
     Dosage: 3 MILLIGRAM DAILY;
  4. FLEXERIL [Concomitant]
  5. TOPAMAX [Concomitant]

REACTIONS (5)
  - Withdrawal syndrome [Recovering/Resolving]
  - Hypoaesthesia [Recovering/Resolving]
  - Night sweats [Recovering/Resolving]
  - Drug ineffective [Unknown]
  - Drug effect incomplete [Unknown]
